FAERS Safety Report 6584618-6 (Version None)
Quarter: 2010Q1

REPORT INFORMATION
  Report Type: 
  Country: None (occurrence: None)
  Receive Date: 20100213
  Receipt Date: 20100213
  Transmission Date: 20100710
  Serious: Yes (Life-Threatening)
  Sender: FDA-Public Use
  Company Number: None

PATIENT
  Sex: Female
  Weight: 122.9248 kg

DRUGS (1)
  1. NOVOLOG [Suspect]
     Indication: INSULIN-REQUIRING TYPE 2 DIABETES MELLITUS
     Dosage: 38 UNITS AM 45 UNITS PM BID SUBCUTANEOUS (057) MID DEC 2009 TO 02/09/2010
     Route: 058
     Dates: start: 20091201, end: 20100209

REACTIONS (2)
  - HYPOGLYCAEMIA [None]
  - PRODUCT SUBSTITUTION ISSUE [None]
